FAERS Safety Report 7267140-3 (Version None)
Quarter: 2011Q1

REPORT INFORMATION
  Report Type: 
  Country: None (occurrence: None)
  Receive Date: 20110201
  Receipt Date: 20110117
  Transmission Date: 20110831
  Serious: Yes (Hospitalization)
  Sender: FDA-Public Use
  Company Number: IL-RANBAXY-2011RR-41257

PATIENT
  Age: 16 Year

DRUGS (12)
  1. SIROLIMUS [Suspect]
     Dosage: 0.05 MG/KG, UNK
  2. CASPOFUNGIN [Suspect]
  3. METHYLPREDNISOLONE [Suspect]
     Dosage: 1 MG/KG, UNK
  4. PAROMOMYCIN [Suspect]
  5. INFLIXIMAB [Suspect]
     Dosage: 4 MG/KG, UNK
  6. NITAZOXANIDE [Suspect]
  7. METHYLPREDNISOLONE [Suspect]
     Dosage: 0.5 MG/KG, UNK
  8. MYCOPHENOLATE MOFETIL [Suspect]
     Indication: IMMUNOSUPPRESSION
     Dosage: 12.5 MG/KG, UNK
  9. FLUCONAZOLE [Suspect]
  10. TACROLIMUS [Suspect]
     Indication: IMMUNOSUPPRESSION
     Dosage: 0.2 MG/KG, UNK
  11. PREDNISOLONE [Suspect]
     Indication: IMMUNOSUPPRESSION
     Dosage: 0.125 MG/KG, UNK
  12. ANTI-THYMOCYTE GLOBULIN NOS [Suspect]
     Dosage: 1.5 MG/KG, UNK

REACTIONS (10)
  - NEUTROPENIA [None]
  - ZYGOMYCOSIS [None]
  - RENAL IMPAIRMENT [None]
  - CANDIDIASIS [None]
  - LYMPHOPENIA [None]
  - GASTROINTESTINAL HAEMORRHAGE [None]
  - LEUKOENCEPHALOPATHY [None]
  - TOXICITY TO VARIOUS AGENTS [None]
  - HEPATIC ENZYME ABNORMAL [None]
  - METABOLIC ACIDOSIS [None]
